FAERS Safety Report 5488843-7 (Version None)
Quarter: 2007Q4

REPORT INFORMATION
  Report Type: 
  Country: None (occurrence: None)
  Receive Date: 20071017
  Receipt Date: 20071005
  Transmission Date: 20080405
  Serious: Yes (Other)
  Sender: FDA-Public Use
  Company Number: FR-PFIZER INC-2007084171

PATIENT
  Sex: Male

DRUGS (1)
  1. XALATAN [Suspect]

REACTIONS (3)
  - CATARACT OPERATION [None]
  - INTRAOCULAR PRESSURE INCREASED [None]
  - PIGMENT DISPERSION SYNDROME [None]
